FAERS Safety Report 22122787 (Version 1)
Quarter: 2023Q1

REPORT INFORMATION
  Report Type: Spontaneous
  Country: TW (occurrence: TW)
  Receive Date: 20230322
  Receipt Date: 20230322
  Transmission Date: 20230417
  Serious: Yes (Hospitalization, Other)
  Sender: FDA-Public Use
  Company Number: TW-BRISTOL-MYERS SQUIBB COMPANY-2023-040399

PATIENT
  Age: 58 Year
  Sex: Female

DRUGS (4)
  1. NIVOLUMAB [Suspect]
     Active Substance: NIVOLUMAB
     Indication: Adenocarcinoma gastric
     Dosage: FIRST CYCLE
     Dates: start: 20171124
  2. NIVOLUMAB [Suspect]
     Active Substance: NIVOLUMAB
     Dosage: SECOND CYCLE
     Dates: start: 20171211
  3. NIVOLUMAB [Suspect]
     Active Substance: NIVOLUMAB
     Dosage: 3RD CYCLE
     Dates: start: 20180104
  4. NIVOLUMAB [Suspect]
     Active Substance: NIVOLUMAB
     Dosage: FOURTH CYCLE
     Dates: start: 20180118

REACTIONS (1)
  - Renal tubular injury [Recovered/Resolved]

NARRATIVE: CASE EVENT DATE: 20170101
